FAERS Safety Report 4362186-7 (Version None)
Quarter: 2004Q2

REPORT INFORMATION
  Report Type: 
  Country: None (occurrence: None)
  Receive Date: 20040517
  Receipt Date: 20040507
  Transmission Date: 20050107
  Serious: Yes (Death, Life-Threatening, Hospitalization, Other)
  Sender: FDA-Public Use
  Company Number: 2004026045

PATIENT
  Age: 33 Year
  Sex: Female
  Weight: 70 kg

DRUGS (10)
  1. VFEND [Suspect]
     Indication: FEBRILE NEUTROPENIA
  2. VFEND [Suspect]
     Indication: PROPHYLAXIS
  3. PRIMAXIN [Concomitant]
  4. AMIKACIN [Concomitant]
  5. ACYCLOVIR [Concomitant]
  6. VANCOMYCIN [Concomitant]
  7. CARBAMAZEPINE [Concomitant]
  8. LOPERAMIDE HCL [Concomitant]
  9. HEPARIN-FRACTION, SODIUM SALT (HEPARIN-FRACTION, SODIUM SALT) [Concomitant]
  10. GANCICLOVIR SODIUM [Concomitant]

REACTIONS (4)
  - BRONCHOPNEUMONIA [None]
  - HEPATIC CANDIDIASIS [None]
  - SEPTIC SHOCK [None]
  - SYSTEMIC CANDIDA [None]
